FAERS Safety Report 5896478-7 (Version None)
Quarter: 2008Q3

REPORT INFORMATION
  Report Type: 
  Country: None (occurrence: None)
  Receive Date: 20080924
  Receipt Date: 20080912
  Transmission Date: 20090109
  Serious: Yes (Hospitalization)
  Sender: FDA-Public Use
  Company Number: US-PFIZER INC-2008077238

PATIENT

DRUGS (1)
  1. CHANTIX [Suspect]

REACTIONS (3)
  - AGITATION [None]
  - IRRITABILITY [None]
  - NERVOUSNESS [None]
